FAERS Safety Report 15592371 (Version 3)
Quarter: 2019Q3

REPORT INFORMATION
  Report Type: Spontaneous
  Country: CO (occurrence: CO)
  Receive Date: 20181106
  Receipt Date: 20190926
  Transmission Date: 20191004
  Serious: Yes (Death, Hospitalization)
  Sender: FDA-Public Use
  Company Number: CO-PFIZER INC-2018449649

PATIENT
  Sex: Female

DRUGS (1)
  1. SUTENT [Suspect]
     Active Substance: SUNITINIB MALATE
     Dosage: 37.5 MG (1 CAPSULE OF 12.5 MG AND 1 CAPSULE OF 25 MG),
     Route: 048
     Dates: start: 2011, end: 2017

REACTIONS (4)
  - Death [Fatal]
  - Seizure [Unknown]
  - Spinal cord compression [Unknown]
  - Loss of consciousness [Unknown]

NARRATIVE: CASE EVENT DATE: 20181026
